FAERS Safety Report 9539197 (Version 1)
Quarter: 2013Q3

REPORT INFORMATION
  Report Type: Spontaneous
  Country: US (occurrence: US)
  Receive Date: 20130920
  Receipt Date: 20130920
  Transmission Date: 20140515
  Serious: No
  Sender: FDA-Public Use
  Company Number: US-B.I. PHARMACEUTICALS,INC./RIDGEFIELD-2013-BI-28648BP

PATIENT
  Age: 64 Year
  Sex: Female
  Weight: 83 kg

DRUGS (7)
  1. TRADJENTA [Suspect]
     Indication: DIABETES MELLITUS
     Dosage: 5 MG
     Route: 048
     Dates: start: 20130827, end: 20130907
  2. PROVENTIL [Concomitant]
     Indication: ASTHMA
     Route: 055
     Dates: start: 1998
  3. ADVAIR [Concomitant]
     Indication: ASTHMA
     Dosage: STRENGTH: 250 MCG / 50 MCG; DAILY DOSE: 500 MCG / 100 MCG
     Route: 055
     Dates: start: 1998
  4. METFORMIN [Concomitant]
     Indication: DIABETES MELLITUS
     Dosage: 2000 MG
     Route: 048
     Dates: start: 201201
  5. TRIAMTERENE HCTZ [Concomitant]
     Indication: HYPERTENSION
     Dosage: STRENGTH: 75 MG / 50 MG; DAILY DOSE: 75 MG / 50 MG
     Route: 048
     Dates: start: 2008
  6. METOPROLOL [Concomitant]
     Indication: HYPERTENSION
     Dosage: 100 MG
     Route: 048
     Dates: start: 2008
  7. ATORVASTATIN [Concomitant]
     Indication: BLOOD CHOLESTEROL INCREASED
     Dosage: 20 MG
     Route: 048
     Dates: start: 201201

REACTIONS (3)
  - Arthralgia [Recovered/Resolved]
  - Musculoskeletal stiffness [Recovered/Resolved]
  - Gait disturbance [Recovered/Resolved]
